FAERS Safety Report 9511732 (Version 2)
Quarter: 2014Q1

REPORT INFORMATION
  Report Type: Spontaneous
  Country: US (occurrence: None)
  Receive Date: 20130305
  Receipt Date: 20140306
  Transmission Date: 20141002
  Serious: Yes (Hospitalization, Other)
  Sender: FDA-Public Use
  Company Number: 163-21880-12103474

PATIENT
  Age: 88 Year
  Sex: Female
  Weight: 48.99 kg

DRUGS (10)
  1. REVLIMID [Suspect]
     Indication: MYELODYSPLASTIC SYNDROME
     Dosage: 5 MG, 1 IN 1 D, PO
     Route: 048
     Dates: start: 20121012
  2. BLOOD (BLOOD AND RELATED PRODUCTS) (INJECTION FOR INFUSION) [Concomitant]
  3. PROCRIT (ERYTHROPOETIN) [Concomitant]
  4. ATORVASTATIN (ATORVASTATIN) [Concomitant]
  5. METOPROLOL (METOPROLOL) [Concomitant]
  6. LAMOTRIGINE (LAMOTRIGINE) [Concomitant]
  7. LAMICTAL (LAMOTRIGINE) [Concomitant]
  8. LIPITOR (ATORVASTATIN) (UNKNOWN) [Concomitant]
  9. PRENATAL VITAMINS (PRENATAL VITAMINS) (TABLETS) [Concomitant]
  10. TOPROL XL 9METOPROLOL SUCCINATE) (UNKNOWN) [Concomitant]

REACTIONS (1)
  - Blood count abnormal [None]
